FAERS Safety Report 7515304-3 (Version None)
Quarter: 2011Q2

REPORT INFORMATION
  Report Type: 
  Country: None (occurrence: None)
  Receive Date: 20110601
  Receipt Date: 20110526
  Transmission Date: 20111010
  Serious: Yes (Other)
  Sender: FDA-Public Use
  Company Number: FR-ELI_LILLY_AND_COMPANY-FR201102006164

PATIENT
  Sex: Male
  Weight: 73 kg

DRUGS (7)
  1. RAMIPRIL [Concomitant]
     Dosage: 10 MG, QD
     Route: 048
     Dates: start: 20100909
  2. ASPIRIN [Concomitant]
     Dosage: 160 MG, QD
     Route: 048
     Dates: start: 20100915
  3. EFFIENT [Suspect]
     Dosage: 10 MG, QD
     Route: 065
     Dates: start: 20100918, end: 20101124
  4. EFFIENT [Suspect]
     Indication: ANGIOPLASTY
     Dosage: 60MG, QD
     Route: 065
     Dates: start: 20100915, end: 20100917
  5. ATORVASTATIN [Concomitant]
     Dosage: 80 MG, QD
     Route: 048
     Dates: start: 20100909
  6. SITAGLIPTIN PHOSPHATE [Concomitant]
     Indication: TYPE 2 DIABETES MELLITUS
     Dosage: UNK
     Route: 048
     Dates: start: 20100901
  7. BISOPROLOL [Concomitant]
     Dosage: 10 MG, QD
     Route: 048
     Dates: start: 20100909

REACTIONS (5)
  - STRESS ULCER [None]
  - ANAEMIA [None]
  - GASTROINTESTINAL HAEMORRHAGE [None]
  - HAEMOGLOBIN DECREASED [None]
  - HAEMATOMA [None]
